FAERS Safety Report 22620275 (Version 1)
Quarter: 2023Q2

REPORT INFORMATION
  Report Type: Report from Study
  Country: US (occurrence: None)
  Receive Date: 20230620
  Receipt Date: 20230620
  Transmission Date: 20230722
  Serious: Yes (Life-Threatening, Other)
  Sender: FDA-Public Use
  Company Number: 2023A141497

PATIENT
  Sex: Female
  Weight: 46.7 kg

DRUGS (29)
  1. TAGRISSO [Suspect]
     Active Substance: OSIMERTINIB
     Indication: Lung carcinoma cell type unspecified stage 0
     Route: 048
     Dates: start: 20190128
  2. AMIODARONE HYDROCHLORIDE [Concomitant]
     Active Substance: AMIODARONE HYDROCHLORIDE
  3. ALIGN [Concomitant]
     Active Substance: BIFIDOBACTERIUM LONGUM SUBSP. INFANTIS
  4. NTEGRA [Concomitant]
  5. CLARITIN [Concomitant]
     Active Substance: LORATADINE
  6. NITROFURANTOIN [Concomitant]
     Active Substance: NITROFURANTOIN
  7. CORTISPORIN [Concomitant]
     Active Substance: BACITRACIN ZINC\HYDROCORTISONE\NEOMYCIN SULFATE\POLYMYXIN B SULFATE
  8. MULTIVITAMIN CAPSULE, ZYRTEC [Concomitant]
  9. GENTEAL TEARS [Concomitant]
     Active Substance: DEXTRAN 70\HYPROMELLOSE 2910 (4000 MPA.S)
     Dosage: 0.1%-0.3% DROPS
  10. VALTREX [Concomitant]
     Active Substance: VALACYCLOVIR HYDROCHLORIDE
  11. ANASTROZOLE [Concomitant]
     Active Substance: ANASTROZOLE
  12. LOSARTAN POTASSIUM [Concomitant]
     Active Substance: LOSARTAN POTASSIUM
  13. ATROVENT HFA [Concomitant]
     Active Substance: IPRATROPIUM BROMIDE
     Dosage: 7MCG HFA AER AD
  14. OFLOXACIN [Concomitant]
     Active Substance: OFLOXACIN
     Dosage: 0.3 % DROPS
  15. HYDROCORTISONE-ALOE [Concomitant]
     Dosage: 1 % CREAM(GM)
  16. IMODIUM A-D [Concomitant]
     Active Substance: LOPERAMIDE HYDROCHLORIDE
  17. ZOFRAN [Concomitant]
     Active Substance: ONDANSETRON HYDROCHLORIDE
  18. TUMS [Concomitant]
     Active Substance: CALCIUM CARBONATE
  19. CYANOCOBALAMIN [Concomitant]
     Active Substance: CYANOCOBALAMIN
  20. DOXYCYCLINE HYCLATE [Concomitant]
     Active Substance: DOXYCYCLINE HYCLATE
  21. NYSTATIN-TRIAMCINOLONE [Concomitant]
  22. KETOCONAZOLE [Concomitant]
     Active Substance: KETOCONAZOLE
     Dosage: 2 % CREAM
  23. ALBUTEROL SULFATE [Concomitant]
     Active Substance: ALBUTEROL SULFATE
  24. FLUTICASONE PROPIONATE [Concomitant]
     Active Substance: FLUTICASONE PROPIONATE
     Dosage: 50 MCG SPRAY
  25. SPIRIVA [Concomitant]
     Active Substance: TIOTROPIUM BROMIDE MONOHYDRATE
     Dosage: 18 MCG CAP W/DEV
  26. FOLIC ACID [Concomitant]
     Active Substance: FOLIC ACID
  27. CARVEDILOL [Concomitant]
     Active Substance: CARVEDILOL
  28. MUPIROCIN [Concomitant]
     Active Substance: MUPIROCIN
     Dosage: 2% CREAM
  29. METRONIDAZOLE [Concomitant]
     Active Substance: METRONIDAZOLE
     Dosage: 0.75 % CREAM(GM)

REACTIONS (4)
  - Blood pressure abnormal [Unknown]
  - Atrial fibrillation [Unknown]
  - Dehydration [Unknown]
  - Stress [Unknown]
